FAERS Safety Report 4807814-4 (Version None)
Quarter: 2005Q4

REPORT INFORMATION
  Report Type: 
  Country: None (occurrence: None)
  Receive Date: 20051020
  Receipt Date: 20051007
  Transmission Date: 20060501
  Serious: Yes (Hospitalization)
  Sender: FDA-Public Use
  Company Number: 2005139075

PATIENT
  Age: 30 Year
  Sex: Female

DRUGS (2)
  1. DIFLUCAN [Suspect]
     Indication: FUNGAL INFECTION
     Dosage: ORAL
     Route: 048
  2. SPORANOX [Suspect]
     Indication: FUNGAL INFECTION
     Dosage: ORAL
     Route: 048

REACTIONS (2)
  - PANCREATIC CYST [None]
  - PANCREATITIS [None]
